FAERS Safety Report 24226791 (Version 2)
Quarter: 2024Q4

REPORT INFORMATION
  Report Type: Spontaneous
  Country: US (occurrence: US)
  Receive Date: 20240820
  Receipt Date: 20241127
  Transmission Date: 20250115
  Serious: Yes (Other)
  Sender: SANOFI AVENTIS
  Company Number: US-SA-SAC20240819000061

PATIENT
  Age: 32 Year
  Sex: Male

DRUGS (1)
  1. DUPIXENT [Suspect]
     Active Substance: DUPILUMAB
     Indication: Dermatitis atopic
     Dosage: 300 MG, QOW
     Route: 058

REACTIONS (16)
  - Herpes ophthalmic [Unknown]
  - Asthenopia [Unknown]
  - Fatigue [Unknown]
  - Skin weeping [Unknown]
  - Skin fissures [Unknown]
  - Dry skin [Unknown]
  - Skin haemorrhage [Unknown]
  - Eye pain [Unknown]
  - Skin exfoliation [Unknown]
  - Pruritus [Unknown]
  - Toothache [Unknown]
  - Dermatitis atopic [Unknown]
  - Therapeutic response shortened [Unknown]
  - Injection site erythema [Unknown]
  - Injection site pain [Unknown]
  - Eye pruritus [Unknown]

NARRATIVE: CASE EVENT DATE: 20241101
